FAERS Safety Report 10305506 (Version 6)
Quarter: 2014Q4

REPORT INFORMATION
  Report Type: Spontaneous
  Country: US (occurrence: US)
  Receive Date: 20140715
  Receipt Date: 20141204
  Transmission Date: 20150528
  Serious: Yes (Other)
  Sender: FDA-Public Use
  Company Number: US-PFIZER INC-2014194490

PATIENT
  Age: 66 Year
  Sex: Male
  Weight: 73 kg

DRUGS (10)
  1. SUTENT [Suspect]
     Active Substance: SUNITINIB MALATE
     Dosage: 37.5 MG, CYCLIC (ONCE A DAY FOR 21 DAYS FOLLOWED BY ONE WEEK OFF PERIOD )
     Route: 048
     Dates: start: 20140711, end: 20140731
  2. SUTENT [Suspect]
     Active Substance: SUNITINIB MALATE
     Indication: RENAL CELL CARCINOMA
     Dosage: 37.5 MG, CYCLIC (ONCE A DAY FOR 21 DAYS FOLLOWED BY ONE WEEK OFF PERIOD )
     Route: 048
     Dates: start: 20140514, end: 20140707
  3. ASPIRIN. [Concomitant]
     Active Substance: ASPIRIN
     Dosage: UNK
  4. SILDENAFIL. [Concomitant]
     Active Substance: SILDENAFIL
     Dosage: UNK
  5. FLOMAX [Concomitant]
     Active Substance: TAMSULOSIN HYDROCHLORIDE
     Dosage: UNK
  6. DEXILANT [Concomitant]
     Active Substance: DEXLANSOPRAZOLE
     Dosage: UNK
  7. CRESTOR [Concomitant]
     Active Substance: ROSUVASTATIN CALCIUM
     Dosage: UNK
  8. AMLODIPINE [Concomitant]
     Active Substance: AMLODIPINE BESYLATE
     Dosage: UNK
  9. FORTESTA [Concomitant]
     Active Substance: TESTOSTERONE
     Dosage: UNK
  10. CLONAZEPAM. [Concomitant]
     Active Substance: CLONAZEPAM
     Dosage: UNK

REACTIONS (11)
  - Eye haemorrhage [Recovering/Resolving]
  - Blindness unilateral [Recovering/Resolving]
  - Blindness [Recovering/Resolving]
  - Optic ischaemic neuropathy [Unknown]
  - Blood urea increased [Unknown]
  - Blindness unilateral [Not Recovered/Not Resolved]
  - Papilloedema [Recovering/Resolving]
  - Intraocular pressure fluctuation [Recovering/Resolving]
  - Blood creatinine increased [Unknown]
  - Retinal oedema [Unknown]
  - Vision blurred [Recovering/Resolving]

NARRATIVE: CASE EVENT DATE: 2014
